FAERS Safety Report 8804963 (Version 1)
Quarter: 2012Q4

REPORT INFORMATION
  Report Type: 
  Country: ES (occurrence: ES)
  Receive Date: 20120924
  Receipt Date: 20120924
  Transmission Date: 20130627
  Serious: Yes (Other)
  Sender: FDA-Public Use
  Company Number: ES-SANOFI-AVENTIS-2012SA067173

PATIENT
  Age: 26 Year
  Sex: Male

DRUGS (1)
  1. CLEXANE [Suspect]
     Indication: SUBCLAVIAN VEIN THROMBOSIS
     Route: 058
     Dates: start: 201205, end: 201207

REACTIONS (1)
  - Hepatitis toxic [Recovered/Resolved]
